FAERS Safety Report 9432596 (Version 1)
Quarter: 2013Q3

REPORT INFORMATION
  Report Type: Spontaneous
  Country: US (occurrence: US)
  Receive Date: 20130731
  Receipt Date: 20130731
  Transmission Date: 20140515
  Serious: Yes (Other)
  Sender: FDA-Public Use
  Company Number: US-BAYER-2013-090334

PATIENT
  Sex: Female

DRUGS (6)
  1. BETASERON [Suspect]
     Indication: PRODUCT USED FOR UNKNOWN INDICATION
  2. COPAXONE [Suspect]
     Indication: PRODUCT USED FOR UNKNOWN INDICATION
  3. AMPYRA [Suspect]
     Indication: MULTIPLE SCLEROSIS
     Dosage: 10 MG, UNK
     Route: 048
  4. IBUPROFEN [Concomitant]
     Dosage: UNK
  5. VITAMIN D3 [Concomitant]
     Dosage: UNK
  6. CHLORPHENIRAMINE MALEATE [Concomitant]
     Dosage: UNK

REACTIONS (3)
  - Multiple sclerosis relapse [Recovered/Resolved]
  - Injection site reaction [None]
  - Hepatic enzyme increased [Recovered/Resolved]
